FAERS Safety Report 19728037 (Version 4)
Quarter: 2022Q1

REPORT INFORMATION
  Report Type: Spontaneous
  Country: US (occurrence: US)
  Receive Date: 20210820
  Receipt Date: 20220314
  Transmission Date: 20220423
  Serious: No
  Sender: FDA-Public Use
  Company Number: US-SA-SAC20210818001231

PATIENT
  Age: 71 Year
  Sex: Male

DRUGS (3)
  1. DUPIXENT [Suspect]
     Active Substance: DUPILUMAB
     Indication: Dermatitis atopic
     Dosage: 300 MG, QOW (300MG/2ML)
     Route: 058
     Dates: start: 20210224
  2. COVID-19 VACCINE NOS [Suspect]
     Active Substance: COVID-19 VACCINE NOS
     Indication: Immunisation
     Dosage: UNK
  3. DAPSONE [Suspect]
     Active Substance: DAPSONE
     Dosage: 25 MG
     Route: 048

REACTIONS (11)
  - Dry skin [Not Recovered/Not Resolved]
  - Nail disorder [Unknown]
  - Itching scar [Unknown]
  - Impaired healing [Unknown]
  - Skin exfoliation [Not Recovered/Not Resolved]
  - Rash [Unknown]
  - Rash pruritic [Unknown]
  - Condition aggravated [Unknown]
  - Psoriasis [Unknown]
  - Eczema [Unknown]
  - Therapeutic response decreased [Unknown]

NARRATIVE: CASE EVENT DATE: 20210101
